FAERS Safety Report 8803462 (Version 3)
Quarter: 2013Q1

REPORT INFORMATION
  Report Type: Spontaneous
  Country: IE (occurrence: IE)
  Receive Date: 20120924
  Receipt Date: 20121207
  Transmission Date: 20140127
  Serious: Yes (Hospitalization)
  Sender: FDA-Public Use
  Company Number: IE-ASTRAZENECA-2012SE71309

PATIENT
  Age: 22686 Day
  Sex: Male

DRUGS (2)
  1. MEROPENEM [Suspect]
     Indication: TRANSPLANT
     Route: 041
     Dates: start: 20120831
  2. COLISTIMETHATE [Concomitant]
     Dosage: 1MU IN 50ML SODIUM CHLORIDE 0.9% BP IN A SV100 INTERMATE(TOTAL VOLUME 50ML)
     Route: 042

REACTIONS (1)
  - Catheter site swelling [Recovered/Resolved]
